FAERS Safety Report 13646496 (Version 1)
Quarter: 2017Q2

REPORT INFORMATION
  Report Type: Spontaneous
  Country: US (occurrence: US)
  Receive Date: 20170612
  Receipt Date: 20170612
  Transmission Date: 20170830
  Serious: No
  Sender: FDA-Public Use
  Company Number: None

PATIENT
  Age: 68 Year
  Sex: Male
  Weight: 67.5 kg

DRUGS (4)
  1. CIALIS [Suspect]
     Active Substance: TADALAFIL
     Indication: ERECTILE DYSFUNCTION
     Dosage: ?          QUANTITY:1 TABLET(S);?DAILY ORAL
     Route: 048
     Dates: start: 20170302, end: 20170317
  2. CIALIS [Suspect]
     Active Substance: TADALAFIL
     Indication: BENIGN PROSTATIC HYPERPLASIA
     Dosage: ?          QUANTITY:1 TABLET(S);?DAILY ORAL
     Route: 048
     Dates: start: 20170302, end: 20170317
  3. B12 500MG. [Concomitant]
  4. COQ-10 100MG [Concomitant]

REACTIONS (4)
  - Condition aggravated [None]
  - Dysuria [None]
  - Micturition urgency [None]
  - Nocturia [None]

NARRATIVE: CASE EVENT DATE: 20170302
